FAERS Safety Report 7152359-2 (Version None)
Quarter: 2010Q4

REPORT INFORMATION
  Report Type: 
  Country: None (occurrence: None)
  Receive Date: 20101123
  Receipt Date: 20101017
  Transmission Date: 20110411
  Serious: Yes (Hospitalization)
  Sender: FDA-Public Use
  Company Number: 021789

PATIENT
  Sex: Female

DRUGS (22)
  1. VIMPAT [Suspect]
     Indication: OFF LABEL USE
     Dosage: SEE IMAGE
  2. NAKOM (NAKOM) [Suspect]
     Dosage: (UPTITRATION), (36 MG, PER DAY), (DOSE INCREASE), (54 MG, PER DAY)
     Dates: start: 20080805, end: 20080101
  3. NAKOM (NAKOM) [Suspect]
     Dosage: (UPTITRATION), (36 MG, PER DAY), (DOSE INCREASE), (54 MG, PER DAY)
     Dates: start: 20080405, end: 20080401
  4. NAKOM (NAKOM) [Suspect]
     Dosage: (UPTITRATION), (36 MG, PER DAY), (DOSE INCREASE), (54 MG, PER DAY)
     Dates: start: 20080414, end: 20080401
  5. NAKOM (NAKOM) [Suspect]
     Dosage: (UPTITRATION), (36 MG, PER DAY), (DOSE INCREASE), (54 MG, PER DAY)
     Dates: start: 20080401, end: 20080417
  6. PHENHYDAN /00017401/ (PHENHYDRAN) (NOT SPECIFIED) [Suspect]
     Dosage: (INTRAVENOUS), (DOSE REDUCTION)
     Route: 042
     Dates: start: 20060301, end: 20060301
  7. PHENHYDAN /00017401/ (PHENHYDRAN) (NOT SPECIFIED) [Suspect]
     Dosage: (INTRAVENOUS), (DOSE REDUCTION)
     Route: 042
     Dates: start: 20080101, end: 20080101
  8. PHENHYDAN /00017401/ (PHENHYDRAN) (NOT SPECIFIED) [Suspect]
     Dosage: (INTRAVENOUS), (DOSE REDUCTION)
     Route: 042
     Dates: start: 20080101, end: 20081028
  9. LUMINAL /00023201/ [Suspect]
     Dosage: SEE IMAGE
     Route: 042
     Dates: start: 20060101, end: 20060101
  10. LUMINAL /00023201/ [Suspect]
     Dosage: SEE IMAGE
     Route: 042
     Dates: end: 20060101
  11. LUMINAL /00023201/ [Suspect]
     Dosage: SEE IMAGE
     Route: 042
     Dates: start: 20060101, end: 20060401
  12. LUMINAL /00023201/ [Suspect]
     Dosage: SEE IMAGE
     Route: 042
     Dates: start: 20060510, end: 20060501
  13. LUMINAL /00023201/ [Suspect]
     Dosage: SEE IMAGE
     Route: 042
     Dates: start: 20060511, end: 20060601
  14. LUMINAL /00023201/ [Suspect]
     Dosage: SEE IMAGE
     Route: 042
     Dates: start: 20060601, end: 20060601
  15. LUMINAL /00023201/ [Suspect]
     Dosage: SEE IMAGE
     Route: 042
     Dates: start: 20060601, end: 20060601
  16. LUMINAL /00023201/ [Suspect]
     Dosage: SEE IMAGE
     Route: 042
     Dates: start: 20080902, end: 20080101
  17. LUMINAL /00023201/ [Suspect]
     Dosage: SEE IMAGE
     Route: 042
     Dates: start: 20060621
  18. LUMINAL /00023201/ [Suspect]
     Dosage: SEE IMAGE
     Route: 042
     Dates: start: 20080101
  19. TALOXA (TALOXA) (NOT SPECIFIED) [Suspect]
     Dosage: SEE IMAGE
     Dates: start: 20060601
  20. TALOXA (TALOXA) (NOT SPECIFIED) [Suspect]
     Dosage: SEE IMAGE
     Dates: start: 20060701
  21. TALOXA (TALOXA) (NOT SPECIFIED) [Suspect]
     Dosage: SEE IMAGE
     Dates: start: 20081028
  22. TALOXA (TALOXA) (NOT SPECIFIED) [Suspect]
     Dosage: SEE IMAGE
     Dates: start: 20090401

REACTIONS (20)
  - CONVULSION [None]
  - CYST [None]
  - DRUG LEVEL INCREASED [None]
  - DYSPNOEA [None]
  - ERYTHEMA [None]
  - FATIGUE [None]
  - FLATULENCE [None]
  - GASTRIC DISORDER [None]
  - HICCUPS [None]
  - NASOPHARYNGITIS [None]
  - PYREXIA [None]
  - RETCHING [None]
  - SEASONAL ALLERGY [None]
  - SEDATION [None]
  - SOMNOLENCE [None]
  - SWELLING [None]
  - SWELLING FACE [None]
  - TEETHING [None]
  - VOMITING [None]
  - WITHDRAWAL SYNDROME [None]
